FAERS Safety Report 5073282-3 (Version None)
Quarter: 2006Q3

REPORT INFORMATION
  Report Type: 
  Country: None (occurrence: None)
  Receive Date: 20060706
  Receipt Date: 20060424
  Transmission Date: 20061208
  Serious: Yes (Other)
  Sender: FDA-Public Use
  Company Number: 200612628BWH

PATIENT
  Sex: Male

DRUGS (5)
  1. LEVITRA [Suspect]
     Indication: ERECTILE DYSFUNCTION
     Dosage: SEE IMAGE
     Route: 048
     Dates: start: 20060401
  2. LEVITRA [Suspect]
     Indication: ERECTILE DYSFUNCTION
     Dosage: SEE IMAGE
     Route: 048
     Dates: start: 20060423
  3. CREATINE [Concomitant]
  4. PROTEIN [Concomitant]
  5. VITAMIN E [Concomitant]

REACTIONS (1)
  - ERECTION INCREASED [None]
